FAERS Safety Report 13402080 (Version 1)
Quarter: 2017Q2

REPORT INFORMATION
  Report Type: Spontaneous
  Country: MY (occurrence: MY)
  Receive Date: 20170404
  Receipt Date: 20170404
  Transmission Date: 20170830
  Serious: Yes (Death)
  Sender: FDA-Public Use
  Company Number: MY-TEVA-756538ACC

PATIENT
  Age: 80 Year
  Sex: Male

DRUGS (4)
  1. RITUXIMAB [Suspect]
     Active Substance: RITUXIMAB
     Indication: LYMPHOCYTIC LYMPHOMA
     Route: 065
     Dates: start: 201506
  2. RIBOMUSTIN [Suspect]
     Active Substance: BENDAMUSTINE HYDROCHLORIDE
     Indication: LYMPHOCYTIC LYMPHOMA
     Route: 042
     Dates: start: 201506
  3. BRENTUXIMAB [Concomitant]
     Active Substance: BRENTUXIMAB VEDOTIN
     Indication: LYMPHOCYTIC LYMPHOMA
     Route: 065
     Dates: start: 201505
  4. NEUPOGEN [Concomitant]
     Active Substance: FILGRASTIM
     Indication: LYMPHOCYTIC LYMPHOMA
     Dosage: (DAY 7 AND 9, TOLERATED WELL)
     Route: 058
     Dates: start: 201505

REACTIONS (3)
  - Drug administration error [Unknown]
  - Death [Fatal]
  - Off label use [Unknown]

NARRATIVE: CASE EVENT DATE: 201506
